FAERS Safety Report 5274143-7 (Version None)
Quarter: 2007Q1

REPORT INFORMATION
  Report Type: 
  Country: None (occurrence: None)
  Receive Date: 20070323
  Receipt Date: 20070320
  Transmission Date: 20070707
  Serious: Yes (Hospitalization)
  Sender: FDA-Public Use
  Company Number: US-BRISTOL-MYERS SQUIBB COMPANY-13721600

PATIENT
  Age: 79 Year
  Sex: Male
  Weight: 64 kg

DRUGS (13)
  1. CETUXIMAB [Suspect]
     Indication: COLORECTAL CANCER
     Route: 042
     Dates: start: 20070306, end: 20070306
  2. BEVACIZUMAB [Suspect]
     Indication: COLORECTAL CANCER
     Route: 042
     Dates: start: 20070306, end: 20070306
  3. FLUOROURACIL [Suspect]
     Indication: COLORECTAL CANCER
     Route: 042
     Dates: start: 20070306, end: 20070306
  4. LEUCOVORIN CALCIUM [Suspect]
     Indication: COLORECTAL CANCER
     Route: 042
     Dates: start: 20070306, end: 20070306
  5. FOSAMAX [Concomitant]
  6. ZOCOR [Concomitant]
  7. ENALAPRIL MALEATE [Concomitant]
  8. AMARYL [Concomitant]
  9. TERAZOSIN HCL [Concomitant]
  10. FUROSEMIDE [Concomitant]
  11. TOPROL-XL [Concomitant]
  12. METFORMIN HCL [Concomitant]
  13. ASPIRIN [Concomitant]

REACTIONS (2)
  - ATELECTASIS [None]
  - PNEUMONIA [None]
